FAERS Safety Report 21815121 (Version 1)
Quarter: 2023Q1

REPORT INFORMATION
  Report Type: Spontaneous
  Country: CN (occurrence: CN)
  Receive Date: 20230104
  Receipt Date: 20230104
  Transmission Date: 20230417
  Serious: Yes (Life-Threatening, Other)
  Sender: FDA-Public Use
  Company Number: CN-ABBVIE-4256188

PATIENT
  Age: 20 Year
  Sex: Female
  Weight: 60 kg

DRUGS (3)
  1. VENCLEXTA [Suspect]
     Active Substance: VENETOCLAX
     Indication: Acute myelomonocytic leukaemia
     Dosage: 100 MG, QD, PO, D1; 200 MG, QD, PO, D2; 400 MG, QD, PO, D3-9
     Route: 048
     Dates: start: 20220510, end: 20220519
  2. CYTARABINE [Suspect]
     Active Substance: CYTARABINE
     Indication: Acute myelomonocytic leukaemia
     Dosage: 2500 MG, QD, IVGTT, D1-5
     Route: 041
     Dates: start: 20210510, end: 20220515
  3. CLADRIBINE [Suspect]
     Active Substance: CLADRIBINE
     Indication: Acute myelomonocytic leukaemia
     Dosage: 8.5 MG, QD, IVGTT, D1-5
     Route: 041
     Dates: start: 20210510, end: 20220515

REACTIONS (5)
  - Myelosuppression [Recovering/Resolving]
  - Haemoglobin decreased [Unknown]
  - Neutrophil count decreased [Unknown]
  - White blood cell count decreased [Unknown]
  - Platelet count decreased [Unknown]

NARRATIVE: CASE EVENT DATE: 20220516
